FAERS Safety Report 24806913 (Version 1)
Quarter: 2025Q1

REPORT INFORMATION
  Report Type: Spontaneous
  Country: DE (occurrence: DE)
  Receive Date: 20250104
  Receipt Date: 20250104
  Transmission Date: 20250408
  Serious: Yes (Hospitalization)
  Sender: AUROBINDO
  Company Number: DE-DCGMA-24204473

PATIENT
  Age: 18 Month
  Sex: Female
  Weight: 12 kg

DRUGS (3)
  1. LAMOTRIGINE [Suspect]
     Active Substance: LAMOTRIGINE
     Indication: Product used for unknown indication
     Route: 048
     Dates: start: 20240630, end: 20240630
  2. LEVETIRACETAM [Suspect]
     Active Substance: LEVETIRACETAM
     Indication: Product used for unknown indication
     Route: 065
  3. CEFPODOXIME PROXETIL [Concomitant]
     Active Substance: CEFPODOXIME PROXETIL
     Indication: Product used for unknown indication
     Route: 065

REACTIONS (9)
  - Wrong product administered [Recovered/Resolved]
  - Gait disturbance [Recovered/Resolved]
  - Feeling jittery [Recovered/Resolved]
  - Somnolence [Recovered/Resolved]
  - Screaming [Recovered/Resolved]
  - Condition aggravated [Recovered/Resolved]
  - Accidental exposure to product [Recovered/Resolved]
  - Product packaging confusion [Recovered/Resolved]
  - Product name confusion [Recovered/Resolved]

NARRATIVE: CASE EVENT DATE: 20240630
